FAERS Safety Report 7560606-8 (Version None)
Quarter: 2011Q2

REPORT INFORMATION
  Report Type: 
  Country: None (occurrence: None)
  Receive Date: 20110621
  Receipt Date: 20101222
  Transmission Date: 20111010
  Serious: No
  Sender: FDA-Public Use
  Company Number: US-ASTRAZENECA-2010SE60482

PATIENT
  Age: 14 Year
  Sex: Female

DRUGS (1)
  1. ENTOCORT EC [Suspect]
     Indication: COLITIS ULCERATIVE
     Route: 048
     Dates: start: 20101216

REACTIONS (1)
  - JOINT SWELLING [None]
